FAERS Safety Report 6885771-7 (Version None)
Quarter: 2010Q3

REPORT INFORMATION
  Report Type: 
  Country: None (occurrence: None)
  Receive Date: 20100729
  Receipt Date: 20080208
  Transmission Date: 20110219
  Serious: No
  Sender: FDA-Public Use
  Company Number: US-PFIZER INC-2008012557

PATIENT
  Sex: Male
  Weight: 77.272 kg

DRUGS (2)
  1. CELEBREX [Suspect]
     Indication: ARTHRALGIA
     Dates: start: 20080101, end: 20080205
  2. TETRACYCLINE [Concomitant]

REACTIONS (9)
  - BLISTER [None]
  - DIZZINESS [None]
  - EAR DISORDER [None]
  - PRURITUS [None]
  - RASH [None]
  - RASH MACULAR [None]
  - RASH PAPULAR [None]
  - SKIN IRRITATION [None]
  - TINNITUS [None]
